FAERS Safety Report 10408442 (Version 1)
Quarter: 2014Q3

REPORT INFORMATION
  Report Type: Spontaneous
  Country: US (occurrence: None)
  Receive Date: 20140825
  Receipt Date: 20140825
  Transmission Date: 20150326
  Serious: Yes (Other)
  Sender: FDA-Public Use
  Company Number: None

PATIENT
  Age: 72 Year
  Sex: Female
  Weight: 76.2 kg

DRUGS (7)
  1. KEPPRA [Concomitant]
     Active Substance: LEVETIRACETAM
  2. CHLORPHEMIRAMINE ANTIHISTAMINE [Concomitant]
  3. PROACTIV [Suspect]
     Active Substance: BENZOYL PEROXIDE
     Dates: start: 20140313, end: 20140314
  4. CLONAZEPAM. [Concomitant]
     Active Substance: CLONAZEPAM
  5. PROACTIV [Suspect]
     Active Substance: BENZOYL PEROXIDE
     Indication: ACNE
     Dates: start: 20140313, end: 20140314
  6. TYLENOL [Concomitant]
     Active Substance: ACETAMINOPHEN
  7. MUCINEX [Concomitant]
     Active Substance: GUAIFENESIN

REACTIONS (5)
  - Unevaluable event [None]
  - Rash [None]
  - Skin irritation [None]
  - Erythema [None]
  - Photosensitivity reaction [None]

NARRATIVE: CASE EVENT DATE: 201403
